FAERS Safety Report 14096813 (Version 2)
Quarter: 2017Q4

REPORT INFORMATION
  Report Type: Spontaneous
  Country: BR (occurrence: BR)
  Receive Date: 20171016
  Receipt Date: 20171215
  Transmission Date: 20180321
  Serious: Yes (Death, Life-Threatening, Hospitalization, Other)
  Sender: FDA-Public Use
  Company Number: BR-GILEAD-2017-0298636

PATIENT
  Age: 65 Year
  Sex: Female

DRUGS (10)
  1. SOVALDI [Suspect]
     Active Substance: SOFOSBUVIR
     Indication: HEPATITIS C
     Dosage: 400 MG, UNK
     Route: 048
     Dates: start: 20160721, end: 20160910
  2. OMEPRAZOLE. [Concomitant]
     Active Substance: OMEPRAZOLE
  3. SOVALDI [Suspect]
     Active Substance: SOFOSBUVIR
     Dosage: 400 MG, UNK
     Route: 048
     Dates: start: 20160911, end: 20161023
  4. SPIRONOLACTON [Concomitant]
     Active Substance: SPIRONOLACTONE
  5. RIBAVIRIN. [Concomitant]
     Active Substance: RIBAVIRIN
     Indication: HEPATITIS C
     Dosage: 500 MG, BID
     Route: 048
     Dates: start: 20160721, end: 20160910
  6. NORFLOXACIN [Concomitant]
     Active Substance: NORFLOXACIN
  7. DAKLINZA [Concomitant]
     Active Substance: DACLATASVIR
     Indication: HEPATITIS C
     Dosage: 60 MG, QD
     Dates: start: 20160721, end: 20160910
  8. DAKLINZA [Concomitant]
     Active Substance: DACLATASVIR
     Dosage: 60 MG, QD
     Dates: start: 20160911, end: 20161023
  9. LEVOTHYROXINE. [Concomitant]
     Active Substance: LEVOTHYROXINE
  10. LACTULOSE. [Concomitant]
     Active Substance: LACTULOSE

REACTIONS (9)
  - Anaemia macrocytic [Not Recovered/Not Resolved]
  - Portal hypertensive gastropathy [Unknown]
  - Shock [Unknown]
  - Hyperkalaemia [Recovered/Resolved]
  - Disseminated intravascular coagulation [Not Recovered/Not Resolved]
  - Death [Fatal]
  - Hypernatraemia [Recovered/Resolved]
  - Sepsis [Unknown]
  - Hepatic encephalopathy [Not Recovered/Not Resolved]

NARRATIVE: CASE EVENT DATE: 20161020
